FAERS Safety Report 7077671-7 (Version None)
Quarter: 2010Q4

REPORT INFORMATION
  Report Type: 
  Country: None (occurrence: None)
  Receive Date: 20101101
  Receipt Date: 20100929
  Transmission Date: 20110411
  Serious: No
  Sender: FDA-Public Use
  Company Number: US-BAYER-201022040NA

PATIENT
  Age: 48 Year
  Sex: Female
  Weight: 111 kg

DRUGS (18)
  1. ULTRAVIST 300 [Suspect]
     Indication: COMPUTERISED TOMOGRAM THORAX
     Dosage: TOTAL DAILY DOSE: 150 ML  UNIT DOSE: 200 ML
     Route: 042
     Dates: start: 20100929, end: 20100929
  2. ULTRAVIST 300 [Suspect]
     Dosage: TOTAL DAILY DOSE: 150 ML  UNIT DOSE: 300 ML
     Route: 042
     Dates: start: 20100607, end: 20100607
  3. ULTRAVIST 300 [Suspect]
     Dosage: TOTAL DAILY DOSE: 150 ML
     Route: 042
     Dates: start: 20100422, end: 20100422
  4. BENADRYL [Concomitant]
     Dosage: TOTAL DAILY DOSE: 50 MG
     Route: 048
     Dates: start: 20100607, end: 20100607
  5. BENADRYL [Concomitant]
  6. BENADRYL [Concomitant]
     Dosage: TOTAL DAILY DOSE: 50 MG
     Dates: start: 20100929, end: 20100929
  7. READI-CAT [Concomitant]
     Route: 048
     Dates: start: 20100422, end: 20100422
  8. PREDNISONE [Concomitant]
     Dosage: DOSE: 12 HRS BEFORE SCAN
     Route: 048
  9. PREDNISONE [Concomitant]
     Dosage: TOTAL DAILY DOSE: 50 MG
     Dates: start: 20100929, end: 20100929
  10. PREDNISONE [Concomitant]
     Dosage: TOTAL DAILY DOSE: 50 MG
     Dates: start: 20100928, end: 20100928
  11. HUMALOG [Concomitant]
  12. EFFEXOR [Concomitant]
  13. LANTUS [Concomitant]
  14. SYNTHROID [Concomitant]
  15. LIPITOR [Concomitant]
  16. DIOVAN [Concomitant]
  17. ZYRTEC [Concomitant]
  18. EFFEXOR XR [Concomitant]

REACTIONS (7)
  - COUGH [None]
  - EAR PRURITUS [None]
  - EYE PRURITUS [None]
  - NASAL CONGESTION [None]
  - PRURITUS [None]
  - RHINORRHOEA [None]
  - THROAT IRRITATION [None]
